FAERS Safety Report 6882592-6 (Version None)
Quarter: 2010Q3

REPORT INFORMATION
  Report Type: 
  Country: None (occurrence: None)
  Receive Date: 20100701
  Receipt Date: 20100208
  Transmission Date: 20110219
  Serious: Yes (Hospitalization)
  Sender: FDA-Public Use
  Company Number: SPV1-2010-00223

PATIENT
  Age: 53 Year
  Sex: Male
  Weight: 78 kg

DRUGS (2)
  1. PENTASA [Suspect]
     Indication: COLITIS ULCERATIVE
     Dosage: 900 MG, 1X/DAY:QD, ORAL
     Route: 048
     Dates: start: 20091229, end: 20100119
  2. LISINOPRIL [Concomitant]

REACTIONS (4)
  - ABDOMINAL PAIN [None]
  - CHILLS [None]
  - PYREXIA [None]
  - VOMITING [None]
